FAERS Safety Report 18856726 (Version 3)
Quarter: 2025Q3

REPORT INFORMATION
  Report Type: Report from Study
  Country: US (occurrence: US)
  Receive Date: 20210207
  Receipt Date: 20250922
  Transmission Date: 20251020
  Serious: Yes (Hospitalization, Other)
  Sender: TAKEDA
  Company Number: US-SHIRE-US202018247

PATIENT
  Age: 27 Year
  Sex: Female

DRUGS (5)
  1. PARATHYROID HORMONE [Suspect]
     Active Substance: PARATHYROID HORMONE
     Indication: Hypoparathyroidism
     Dosage: 50 MICROGRAM, QD
     Dates: start: 20180103
  2. PARATHYROID HORMONE [Suspect]
     Active Substance: PARATHYROID HORMONE
     Dosage: 25 MICROGRAM, QD
     Dates: start: 20200602
  3. PARATHYROID HORMONE [Suspect]
     Active Substance: PARATHYROID HORMONE
     Dosage: 25 MICROGRAM, QD
  4. PARATHYROID HORMONE [Suspect]
     Active Substance: PARATHYROID HORMONE
     Dosage: 50 MICROGRAM, QD
  5. CALCIUM CITRATE [Concomitant]
     Active Substance: CALCIUM CITRATE

REACTIONS (6)
  - Hydrocephalus [Recovering/Resolving]
  - Nephrolithiasis [Unknown]
  - Hypocalcaemia [Recovering/Resolving]
  - Blood calcium increased [Unknown]
  - Wrong technique in product usage process [Unknown]
  - Device defective [Unknown]

NARRATIVE: CASE EVENT DATE: 20200603
